FAERS Safety Report 7715074-X (Version None)
Quarter: 2011Q3

REPORT INFORMATION
  Report Type: 
  Country: None (occurrence: None)
  Receive Date: 20110822
  Receipt Date: 20110809
  Transmission Date: 20111222
  Serious: Yes (Hospitalization)
  Sender: FDA-Public Use
  Company Number: 1000022897

PATIENT
  Age: 80 Year
  Sex: Female

DRUGS (8)
  1. LEVOTHYROXINE SODIUM [Concomitant]
  2. PREVISCAN (FLUINDIONE) ( FLUINDIONE ) [Concomitant]
  3. LANTUS (INSULIN GLARGINE)(INSULIN GLARGINE) [Concomitant]
  4. PRAVASTATIN [Suspect]
     Dosage: 40 MG (40 MG, 1 IN 1 D),ORAL
     Route: 048
     Dates: end: 20110407
  5. KARDEGIC (ACETYLSALICYLATE LYSINE) (ACETYLSALICYLATE LYSINE) [Concomitant]
  6. IRBESARTAN [Suspect]
     Dosage: 300 MG (300 MG, 1 IN 1 D),ORAL
     Route: 048
     Dates: end: 20110407
  7. NEBIVOLOL HCL [Suspect]
     Dosage: 10 MG (5 MG, 2 IN 1 D),ORAL
     Route: 048
     Dates: end: 20110407
  8. LASIX [Suspect]
     Dosage: 80 MG (80 MG, 1 IN 1 D),ORAL
     Route: 048
     Dates: end: 20110407

REACTIONS (5)
  - BLOOD POTASSIUM INCREASED [None]
  - HYPONATRAEMIA [None]
  - BLOOD URIC ACID INCREASED [None]
  - C-REACTIVE PROTEIN INCREASED [None]
  - RENAL FAILURE ACUTE [None]
